FAERS Safety Report 8606763 (Version 3)
Quarter: 2014Q1

REPORT INFORMATION
  Report Type: Spontaneous
  Country: US (occurrence: US)
  Receive Date: 20120611
  Receipt Date: 20140108
  Transmission Date: 20141002
  Serious: Yes (Hospitalization, Disabling, Other)
  Sender: FDA-Public Use
  Company Number: US-ASTRAZENECA-2012SE36183

PATIENT
  Age: 48 Year
  Sex: Female
  Weight: 68.9 kg

DRUGS (23)
  1. TRAMADOL [Concomitant]
  2. MUCINEX [Concomitant]
  3. GABAPENTIN [Concomitant]
     Dates: start: 20110426
  4. PREDNISONE [Concomitant]
     Dates: start: 20111013
  5. NEXIUM [Suspect]
     Indication: GASTROOESOPHAGEAL REFLUX DISEASE
     Route: 048
  6. NEXIUM [Suspect]
     Indication: GASTRIC DISORDER
     Route: 048
  7. NEXIUM [Suspect]
     Indication: GASTROOESOPHAGEAL REFLUX DISEASE
     Route: 048
     Dates: start: 2002
  8. NEXIUM [Suspect]
     Indication: GASTRIC DISORDER
     Route: 048
     Dates: start: 2002
  9. PREVACID [Concomitant]
  10. ANTACIDS [Concomitant]
  11. TUMS [Concomitant]
  12. ALKA-SELTZER [Concomitant]
  13. MILK OF MAGNESIA [Concomitant]
  14. PEPTO BISMOL [Concomitant]
  15. ROLAIDS [Concomitant]
  16. MYLANTA [Concomitant]
  17. VITAMINE D [Concomitant]
  18. HYDROCODONE [Concomitant]
  19. SPIRIVA [Concomitant]
  20. XPENEX INHALER [Concomitant]
  21. ADVAIR [Concomitant]
  22. OFAHAPRETA [Concomitant]
  23. CIPROFLOXACIN [Concomitant]

REACTIONS (16)
  - Pancreatitis [Unknown]
  - Abscess limb [Unknown]
  - Bipolar disorder [Unknown]
  - Femur fracture [Unknown]
  - Functional gastrointestinal disorder [Unknown]
  - Osteoporosis [Unknown]
  - Bone disorder [Unknown]
  - Multiple fractures [Unknown]
  - Fibromyalgia [Unknown]
  - Arthritis [Unknown]
  - Chronic obstructive pulmonary disease [Unknown]
  - Calcium deficiency [Unknown]
  - Bone pain [Unknown]
  - Crohn^s disease [Unknown]
  - Vitamin D deficiency [Unknown]
  - Depression [Unknown]
